FAERS Safety Report 18777844 (Version 3)
Quarter: 2021Q3

REPORT INFORMATION
  Report Type: Spontaneous
  Country: US (occurrence: US)
  Receive Date: 20210122
  Receipt Date: 20210722
  Transmission Date: 20211014
  Serious: No
  Sender: FDA-Public Use
  Company Number: 2020SGN03833

PATIENT
  Sex: Female

DRUGS (12)
  1. TUKYSA [Suspect]
     Active Substance: TUCATINIB
     Dosage: UNK
  2. TUKYSA [Suspect]
     Active Substance: TUCATINIB
     Dosage: UNK
  3. CAPECITABINE. [Suspect]
     Active Substance: CAPECITABINE
     Indication: BREAST CANCER FEMALE
     Dosage: UNK
  4. TUKYSA [Suspect]
     Active Substance: TUCATINIB
     Dosage: 250 MG, BID
  5. KEPPRA [Concomitant]
     Active Substance: LEVETIRACETAM
     Dosage: 1500MG TWICE DAILY
  6. CAPECITABINE. [Suspect]
     Active Substance: CAPECITABINE
     Dosage: 1500MG QAM,1000MG QPM
     Route: 065
  7. TUKYSA [Suspect]
     Active Substance: TUCATINIB
     Indication: BREAST CANCER FEMALE
     Dosage: UNK
     Route: 065
  8. TUKYSA [Suspect]
     Active Substance: TUCATINIB
     Dosage: UNK
  9. TUKYSA [Suspect]
     Active Substance: TUCATINIB
     Dosage: UNK
  10. TUKYSA [Suspect]
     Active Substance: TUCATINIB
     Dosage: UNK
  11. TUKYSA [Suspect]
     Active Substance: TUCATINIB
     Dosage: UNK
  12. TUKYSA [Suspect]
     Active Substance: TUCATINIB
     Dosage: UNK

REACTIONS (17)
  - Skin hypertrophy [Unknown]
  - Blood potassium decreased [Unknown]
  - Faeces soft [Unknown]
  - Blood creatinine increased [Unknown]
  - Administration site pain [Unknown]
  - Hepatic enzyme increased [Unknown]
  - Nausea [Unknown]
  - White blood cell count decreased [Recovering/Resolving]
  - Memory impairment [Unknown]
  - Diarrhoea [Recovering/Resolving]
  - Product dose omission issue [Unknown]
  - Unevaluable event [Unknown]
  - Recall phenomenon [Unknown]
  - Rash [Unknown]
  - Photosensitivity reaction [Unknown]
  - Pain in extremity [Unknown]
  - Palmar-plantar erythrodysaesthesia syndrome [Recovering/Resolving]
